FAERS Safety Report 9239947 (Version 1)
Quarter: 2013Q2

REPORT INFORMATION
  Report Type: Spontaneous
  Country: US (occurrence: US)
  Receive Date: 20130418
  Receipt Date: 20130418
  Transmission Date: 20140414
  Serious: No
  Sender: FDA-Public Use
  Company Number: US-PFIZER INC-2013122657

PATIENT
  Age: 58 Year
  Sex: Male
  Weight: 108.84 kg

DRUGS (4)
  1. LYRICA [Suspect]
     Indication: NERVE INJURY
     Dosage: 150 MG, 2X/DAY
     Route: 048
     Dates: start: 2011, end: 201304
  2. LORAZEPAM [Concomitant]
     Dosage: UNK
  3. OXYCONTIN [Concomitant]
     Dosage: UNK, AS NEEDED
  4. CYMBALTA [Concomitant]
     Dosage: UNK

REACTIONS (1)
  - Pain [Not Recovered/Not Resolved]
